FAERS Safety Report 7763578-6 (Version None)
Quarter: 2011Q3

REPORT INFORMATION
  Report Type: 
  Country: None (occurrence: None)
  Receive Date: 20110920
  Receipt Date: 20110907
  Transmission Date: 20111222
  Serious: Yes (Congenital Anomaly)
  Sender: FDA-Public Use
  Company Number: DE-MYLANLABS-2011S1018526

PATIENT
  Age: 0 Year
  Sex: Male
  Weight: 3.3 kg

DRUGS (5)
  1. MIRTAZAPINE [Suspect]
     Dosage: 15 [MG/D ]/ GW 0-10.1 AND GW 13.1-38.6
     Route: 064
     Dates: start: 20100805, end: 20110504
  2. NASENSPRAY [Concomitant]
     Route: 064
     Dates: start: 20101215, end: 20101217
  3. ACETAMINOPHEN [Concomitant]
     Route: 064
     Dates: start: 20101215, end: 20101217
  4. FOLIO [Concomitant]
     Route: 064
     Dates: start: 20090615, end: 20101216
  5. COTRIM [Concomitant]
     Route: 064
     Dates: start: 20100815, end: 20100820

REACTIONS (2)
  - HYPOSPADIAS [None]
  - MATERNAL EXPOSURE DURING PREGNANCY [None]
